FAERS Safety Report 12792580 (Version 5)
Quarter: 2017Q2

REPORT INFORMATION
  Report Type: Spontaneous
  Country: US (occurrence: US)
  Receive Date: 20160929
  Receipt Date: 20170630
  Transmission Date: 20170830
  Serious: Yes (Other)
  Sender: FDA-Public Use
  Company Number: US-JNJFOC-20160917299

PATIENT
  Sex: Male

DRUGS (4)
  1. RISPERDAL [Suspect]
     Active Substance: RISPERIDONE
     Indication: OPPOSITIONAL DEFIANT DISORDER
     Dosage: VARIED DOSE OF 0.25 MG AND 0.5 MG
     Route: 048
     Dates: start: 200503, end: 200512
  2. RISPERDAL [Suspect]
     Active Substance: RISPERIDONE
     Indication: BALANCE DISORDER
     Dosage: VARIED DOSE OF 0.25 MG AND 0.5 MG
     Route: 048
     Dates: start: 200503, end: 200512
  3. RISPERDAL [Suspect]
     Active Substance: RISPERIDONE
     Indication: ANGER
     Dosage: VARIED DOSE OF 0.25 MG AND 0.5 MG
     Route: 048
     Dates: start: 200503, end: 200512
  4. RISPERDAL [Suspect]
     Active Substance: RISPERIDONE
     Indication: BIPOLAR DISORDER
     Dosage: VARIED DOSE OF 0.25 MG AND 0.5 MG
     Route: 048
     Dates: start: 200503, end: 200512

REACTIONS (4)
  - Gynaecomastia [Unknown]
  - Sedation [Unknown]
  - Drug ineffective [Unknown]
  - Abnormal weight gain [Unknown]

NARRATIVE: CASE EVENT DATE: 2005
